FAERS Safety Report 8061889-0 (Version None)
Quarter: 2012Q1

REPORT INFORMATION
  Report Type: 
  Country: None (occurrence: None)
  Receive Date: 20120117
  Receipt Date: 20120106
  Transmission Date: 20120608
  Serious: Yes (Death, Disabling, Other)
  Sender: FDA-Public Use
  Company Number: 2010MA000213

PATIENT
  Sex: Female
  Weight: 99.3377 kg

DRUGS (40)
  1. BETHANECHOL [Concomitant]
  2. CEPHALEXIN [Concomitant]
  3. CIPROFLOXACIN [Concomitant]
  4. LANTUS [Concomitant]
  5. MOBIC [Concomitant]
  6. MUCINEX [Concomitant]
  7. TOPROL-XL [Concomitant]
  8. TRAMADOL HCL [Concomitant]
  9. VIGAMOX [Concomitant]
  10. CYCLOBENZAPRINE [Concomitant]
  11. ERYTHROMYCIN [Concomitant]
  12. VIOXX [Concomitant]
  13. ACTONEL [Concomitant]
  14. HYZAAR [Concomitant]
  15. ZITHROMAX [Concomitant]
  16. CADUET [Concomitant]
  17. CELEBREX [Concomitant]
  18. LIPITOR [Concomitant]
  19. TANDEM [Concomitant]
  20. HYDROCODONE [Concomitant]
  21. LEVAQUIN [Concomitant]
  22. NITROFURANTOIN [Concomitant]
  23. OMEPRAZOLE [Concomitant]
  24. RAMIPRIL [Concomitant]
  25. CLONIDINE [Concomitant]
  26. APAP TAB [Concomitant]
  27. ONDANSETRON HCL [Concomitant]
  28. ALTACE [Concomitant]
  29. CARISOPRODOL [Concomitant]
  30. COREG [Concomitant]
  31. DIOVAN HCT [Concomitant]
  32. PROMETHAZINE [Concomitant]
  33. ZOCOR [Concomitant]
  34. METOCLOPRAMIDE [Suspect]
     Indication: DIABETIC GASTROPARESIS
     Dosage: 10 MG;QID;PO
     Route: 048
     Dates: start: 20040703, end: 20090630
  35. METOCLOPRAMIDE [Suspect]
     Indication: GASTROOESOPHAGEAL REFLUX DISEASE
     Dosage: 10 MG;QID;PO
     Route: 048
     Dates: start: 20040703, end: 20090630
  36. METOCLOPRAMIDE [Suspect]
     Indication: IMPAIRED GASTRIC EMPTYING
     Dosage: 10 MG;QID;PO
     Route: 048
     Dates: start: 20040703, end: 20090630
  37. HYDROCHLOROTHIAZIDE [Concomitant]
  38. METHYLDOPA [Concomitant]
  39. NORVASC [Concomitant]
  40. PROTONIX [Concomitant]

REACTIONS (22)
  - DEFORMITY [None]
  - PAIN [None]
  - ANAEMIA [None]
  - TREMOR [None]
  - INJURY [None]
  - NERVOUS SYSTEM DISORDER [None]
  - EXTRAPYRAMIDAL DISORDER [None]
  - INTENTIONAL DRUG MISUSE [None]
  - HYPERTENSION [None]
  - MENTAL DISORDER [None]
  - ECONOMIC PROBLEM [None]
  - ANHEDONIA [None]
  - TYPE 2 DIABETES MELLITUS [None]
  - OSTEOARTHRITIS [None]
  - HYPERCHOLESTEROLAEMIA [None]
  - MALAISE [None]
  - CORONARY ARTERY DISEASE [None]
  - TARDIVE DYSKINESIA [None]
  - ACTIVITIES OF DAILY LIVING IMPAIRED [None]
  - GAIT DISTURBANCE [None]
  - BRUXISM [None]
  - SPEECH DISORDER [None]
